FAERS Safety Report 26083597 (Version 1)
Quarter: 2025Q4

REPORT INFORMATION
  Report Type: Spontaneous
  Country: US (occurrence: US)
  Receive Date: 20251124
  Receipt Date: 20251124
  Transmission Date: 20260118
  Serious: Yes (Hospitalization, Other)
  Sender: PFIZER
  Company Number: US-PFIZER INC-PV202500136774

PATIENT
  Age: 75 Year
  Sex: Male

DRUGS (1)
  1. VYNDAMAX [Suspect]
     Active Substance: TAFAMIDIS
     Dosage: 61 MG, 1X/DAY
     Route: 048

REACTIONS (3)
  - Atrial fibrillation [Unknown]
  - Cardiac amyloidosis [Unknown]
  - Weight increased [Unknown]

NARRATIVE: CASE EVENT DATE: 20251104
